FAERS Safety Report 9149409 (Version 2)
Quarter: 2013Q2

REPORT INFORMATION
  Report Type: Spontaneous
  Country: US (occurrence: US)
  Receive Date: 20130308
  Receipt Date: 20130409
  Transmission Date: 20140414
  Serious: Yes (Life-Threatening, Hospitalization)
  Sender: FDA-Public Use
  Company Number: US-JNJFOC-20130215953

PATIENT
  Sex: Female

DRUGS (7)
  1. XARELTO [Suspect]
     Indication: DEEP VEIN THROMBOSIS
     Route: 048
     Dates: start: 20130213, end: 20130220
  2. XARELTO [Suspect]
     Indication: THROMBOSIS
     Route: 048
     Dates: start: 20130213, end: 20130220
  3. TOPAMAX [Concomitant]
     Route: 065
     Dates: start: 20120610
  4. OMEPRAZOLE [Concomitant]
     Indication: GASTROOESOPHAGEAL REFLUX DISEASE
     Route: 065
     Dates: start: 20120101
  5. VIIBRYD [Concomitant]
     Indication: DEPRESSION
     Route: 065
     Dates: start: 20121114
  6. SYNTHROID [Concomitant]
     Indication: HYPOTHYROIDISM
     Route: 065
     Dates: start: 20100610
  7. LORTAB [Concomitant]
     Indication: PAIN
     Dosage: 7.5/500
     Route: 065
     Dates: start: 20130213, end: 20130313

REACTIONS (1)
  - Deep vein thrombosis [Recovering/Resolving]
